FAERS Safety Report 8013793-1 (Version None)
Quarter: 2011Q4

REPORT INFORMATION
  Report Type: 
  Country: None (occurrence: None)
  Receive Date: 20111229
  Receipt Date: 20111006
  Transmission Date: 20120403
  Serious: Yes (Death, Life-Threatening, Other)
  Sender: FDA-Public Use
  Company Number: DE-ABBOTT-11P-062-0856527-00

PATIENT
  Sex: Male
  Weight: 90 kg

DRUGS (8)
  1. NON SELECTIVE NSAIDS [Concomitant]
     Indication: PRODUCT USED FOR UNKNOWN INDICATION
  2. PREDNISONE [Concomitant]
     Indication: PRODUCT USED FOR UNKNOWN INDICATION
     Route: 048
  3. METHOTREXATE SODIUM [Concomitant]
     Indication: PRODUCT USED FOR UNKNOWN INDICATION
     Route: 058
     Dates: start: 20041101, end: 20110301
  4. METHOTREXATE [Concomitant]
     Indication: PRODUCT USED FOR UNKNOWN INDICATION
     Dosage: PER WEEK
  5. SYTEMIC GLUCOCORTICOIDS [Concomitant]
     Indication: PRODUCT USED FOR UNKNOWN INDICATION
  6. HUMIRA [Suspect]
     Indication: POLYARTHRITIS
     Dates: start: 20060406, end: 20100101
  7. DICLOFENAC [Concomitant]
     Indication: PRODUCT USED FOR UNKNOWN INDICATION
     Dosage: THRICE IF REQUIRED
     Route: 048
     Dates: start: 20040701
  8. CALCICARE [Concomitant]
     Indication: PRODUCT USED FOR UNKNOWN INDICATION
     Dosage: TWICE
     Route: 048
     Dates: start: 20090601

REACTIONS (2)
  - METASTASES TO CENTRAL NERVOUS SYSTEM [None]
  - LUNG ADENOCARCINOMA [None]
